FAERS Safety Report 14336660 (Version 3)
Quarter: 2018Q2

REPORT INFORMATION
  Report Type: Spontaneous
  Country: JP (occurrence: JP)
  Receive Date: 20171229
  Receipt Date: 20180412
  Transmission Date: 20180711
  Serious: Yes (Death, Hospitalization, Other)
  Sender: FDA-Public Use
  Company Number: JP-BRISTOL-MYERS SQUIBB COMPANY-BMS-2017-119354

PATIENT
  Age: 78 Year
  Sex: Female

DRUGS (1)
  1. OPDIVO [Suspect]
     Active Substance: NIVOLUMAB
     Indication: NON-SMALL CELL LUNG CANCER
     Dosage: 130 MG, UNK
     Route: 041
     Dates: start: 20161222, end: 20170105

REACTIONS (2)
  - Malignant neoplasm progression [Fatal]
  - Quadriplegia [Not Recovered/Not Resolved]

NARRATIVE: CASE EVENT DATE: 20170113
